FAERS Safety Report 18324007 (Version 3)
Quarter: 2020Q4

REPORT INFORMATION
  Report Type: Spontaneous
  Country: US (occurrence: US)
  Receive Date: 20200929
  Receipt Date: 20201104
  Transmission Date: 20210113
  Serious: No
  Sender: FDA-Public Use
  Company Number: US-PFIZER INC-2020282272

PATIENT
  Age: 65 Year
  Sex: Female
  Weight: 62.14 kg

DRUGS (1)
  1. DUAVEE [Suspect]
     Active Substance: BAZEDOXIFENE ACETATE\ESTROGENS, CONJUGATED
     Indication: MENOPAUSAL SYMPTOMS
     Dosage: 1 DF, DAILY  (0.45/20MG TABLET, 1 TABLET DAILY BY MOUTH)
     Route: 048
     Dates: end: 202007

REACTIONS (4)
  - Malaise [Unknown]
  - Mood swings [Unknown]
  - Feeling abnormal [Unknown]
  - Asthenia [Unknown]
